FAERS Safety Report 15995331 (Version 3)
Quarter: 2019Q2

REPORT INFORMATION
  Report Type: Spontaneous
  Country: JP (occurrence: JP)
  Receive Date: 20190222
  Receipt Date: 20190405
  Transmission Date: 20190711
  Serious: Yes (Life-Threatening, Hospitalization)
  Sender: FDA-Public Use
  Company Number: JP-GLAXOSMITHKLINE-JP2019JPN028833

PATIENT
  Age: 52 Year
  Sex: Female
  Weight: 39 kg

DRUGS (15)
  1. CICLOSPORIN [Concomitant]
     Active Substance: CYCLOSPORINE
     Indication: SYSTEMIC LUPUS ERYTHEMATOSUS
     Dosage: UNK
  2. TEPRENONE [Concomitant]
     Active Substance: TEPRENONE
     Dosage: 3 DF, 1D
  3. PHOSBLOCK [Concomitant]
     Active Substance: FERRIC HYDROXIDE
     Dosage: 2250 MG, 1D
  4. DAIKENCHUTO [Concomitant]
     Active Substance: HERBALS
     Dosage: 3 DF, 1D
  5. WARFARIN (JAPANESE TRADENAME) [Suspect]
     Active Substance: WARFARIN POTASSIUM
     Dosage: UNK UNK, 1D
     Route: 048
     Dates: start: 20190214
  6. NEORAL [Concomitant]
     Active Substance: CYCLOSPORINE
     Indication: SYSTEMIC LUPUS ERYTHEMATOSUS
     Dosage: 100 MG, 1D
  7. FOSRENOL [Concomitant]
     Active Substance: LANTHANUM CARBONATE
     Dosage: 1500 MG, 1D
  8. RABEPRAZOLE SODIUM. [Concomitant]
     Active Substance: RABEPRAZOLE SODIUM
     Dosage: 10 MG, 1D
  9. SENNA [Concomitant]
     Active Substance: SENNA LEAF\SENNOSIDES\SENNOSIDES A AND B
     Indication: CONSTIPATION
     Dosage: 6 G, 1D
  10. WARFARIN (JAPANESE TRADENAME) [Suspect]
     Active Substance: WARFARIN POTASSIUM
     Indication: AORTIC VALVE REPLACEMENT
     Dosage: 2 MG, 1D
     Route: 048
     Dates: start: 20141030, end: 20190206
  11. GASCON (DIMETHICONE) [Concomitant]
     Active Substance: DIMETHICONE
     Dosage: 120 MG, 1D
  12. BENLYSTA [Suspect]
     Active Substance: BELIMUMAB
     Indication: SYSTEMIC LUPUS ERYTHEMATOSUS
     Dosage: 200 MG, 1D
     Route: 058
     Dates: start: 20190205
  13. PREDNISOLONE. [Concomitant]
     Active Substance: PREDNISOLONE
     Indication: SYSTEMIC LUPUS ERYTHEMATOSUS
     Dosage: 5 MG, 1D
  14. PIARLE SYRUP 65% [Concomitant]
     Dosage: 90 ML, 1D
  15. RISUMIC [Concomitant]
     Active Substance: AMEZINIUM METILSULFATE
     Dosage: 30 MG, UNK(ONLY AT TIME OF DIALYSIS)

REACTIONS (4)
  - Haematoma [Recovered/Resolved]
  - Arthralgia [Recovering/Resolving]
  - Anaemia [Recovering/Resolving]
  - Oedema peripheral [Recovering/Resolving]

NARRATIVE: CASE EVENT DATE: 20190205
